FAERS Safety Report 18850948 (Version 1)
Quarter: 2021Q1

REPORT INFORMATION
  Report Type: Report from Study
  Country: US (occurrence: US)
  Receive Date: 20210205
  Receipt Date: 20210205
  Transmission Date: 20210420
  Serious: Yes (Hospitalization, Other)
  Sender: FDA-Public Use
  Company Number: US-ACADIA PHARMACEUTICALS INC.-ACA-2021-PIM-000409

PATIENT
  Age: 75 Year
  Sex: Male

DRUGS (13)
  1. NAMENDA [Concomitant]
     Active Substance: MEMANTINE HYDROCHLORIDE
  2. SUPER B COMPLEX [VITAMIN B COMPLEX] [Concomitant]
  3. VITAMIN D3 [Concomitant]
     Active Substance: CHOLECALCIFEROL
  4. CLONAZEPAM. [Concomitant]
     Active Substance: CLONAZEPAM
  5. MYRBETRIQ [Concomitant]
     Active Substance: MIRABEGRON
  6. VITAMIN B12 [Concomitant]
     Active Substance: CYANOCOBALAMIN
  7. FIBERCON [Concomitant]
     Active Substance: CALCIUM POLYCARBOPHIL
  8. LISINOPRIL. [Concomitant]
     Active Substance: LISINOPRIL
  9. SINEMET [Concomitant]
     Active Substance: CARBIDOPA\LEVODOPA
  10. NUPLAZID [Suspect]
     Active Substance: PIMAVANSERIN TARTRATE
     Indication: PARKINSON^S DISEASE
     Dosage: 34 MILLIGRAM, QD
     Route: 048
  11. DUOPA [Concomitant]
     Active Substance: CARBIDOPA\LEVODOPA
  12. DONEPEZIL. [Concomitant]
     Active Substance: DONEPEZIL
  13. LIPITOR [Concomitant]
     Active Substance: ATORVASTATIN CALCIUM

REACTIONS (3)
  - Pneumonia [Unknown]
  - Urinary tract infection [Unknown]
  - Pyrexia [Unknown]

NARRATIVE: CASE EVENT DATE: 20201224
